FAERS Safety Report 18968444 (Version 1)
Quarter: 2021Q1

REPORT INFORMATION
  Report Type: Spontaneous
  Country: DE (occurrence: DE)
  Receive Date: 20210304
  Receipt Date: 20210304
  Transmission Date: 20210420
  Serious: Yes (Hospitalization, Other)
  Sender: FDA-Public Use
  Company Number: NVSC2021DE042762

PATIENT
  Age: 7 Decade
  Sex: Male

DRUGS (3)
  1. METHOTREXATE. [Suspect]
     Active Substance: METHOTREXATE
     Indication: RHEUMATOID ARTHRITIS
     Dosage: 15 MG,(1 WEEK)
     Route: 065
     Dates: start: 202007
  2. SIMPONI [Suspect]
     Active Substance: GOLIMUMAB
     Indication: RHEUMATOID ARTHRITIS
     Dosage: 50 MG, 4W
     Route: 058
     Dates: start: 201911, end: 20200710
  3. METHOTREXATE. [Suspect]
     Active Substance: METHOTREXATE
     Dosage: 20MG (1 WEEK)
     Route: 065

REACTIONS (8)
  - Haematoma [Recovered/Resolved]
  - Left ventricular hypertrophy [Unknown]
  - Mitral valve incompetence [Unknown]
  - Rheumatoid arthritis [Recovered/Resolved]
  - Rheumatoid arthritis [Recovered/Resolved]
  - Synovial cyst [Not Recovered/Not Resolved]
  - Mitral valve stenosis [Unknown]
  - Thyroid neoplasm [Not Recovered/Not Resolved]

NARRATIVE: CASE EVENT DATE: 20200515
